FAERS Safety Report 22915725 (Version 3)
Quarter: 2024Q2

REPORT INFORMATION
  Report Type: Spontaneous
  Country: US (occurrence: US)
  Receive Date: 20230907
  Receipt Date: 20240628
  Transmission Date: 20240716
  Serious: Yes (Hospitalization, Other)
  Sender: FDA-Public Use
  Company Number: US-002147023-NVSC2023US113767

PATIENT
  Age: 11 Month
  Sex: Female

DRUGS (1)
  1. ALBUTEROL SULFATE [Suspect]
     Active Substance: ALBUTEROL SULFATE
     Indication: Product used for unknown indication
     Dosage: UNK (USED IT TOTAL ABOUT 5 TIMES NOW)
     Route: 065

REACTIONS (3)
  - Atrial fibrillation [Unknown]
  - Device defective [Unknown]
  - Device delivery system issue [Unknown]
